FAERS Safety Report 23507709 (Version 1)
Quarter: 2024Q1

REPORT INFORMATION
  Report Type: Report from Study
  Country: US (occurrence: US)
  Receive Date: 20240209
  Receipt Date: 20240209
  Transmission Date: 20240410
  Serious: No
  Sender: FDA-Public Use
  Company Number: US-ALXN-202402USA000112US

PATIENT
  Sex: Female

DRUGS (1)
  1. STRENSIQ [Suspect]
     Active Substance: ASFOTASE ALFA
     Indication: Product used for unknown indication
     Dosage: UNK
     Route: 065

REACTIONS (10)
  - Stress fracture [Unknown]
  - Asthenia [Unknown]
  - Bone pain [Unknown]
  - Vision blurred [Unknown]
  - Myalgia [Unknown]
  - Mean cell volume increased [Unknown]
  - Neutrophil count increased [Unknown]
  - Lymphocyte count increased [Unknown]
  - Blood urea nitrogen/creatinine ratio increased [Unknown]
  - Skin lesion [Unknown]

NARRATIVE: CASE EVENT DATE: 20240111
